FAERS Safety Report 7715615-2 (Version None)
Quarter: 2011Q3

REPORT INFORMATION
  Report Type: 
  Country: None (occurrence: None)
  Receive Date: 20110829
  Receipt Date: 20110812
  Transmission Date: 20111222
  Serious: Yes (Hospitalization)
  Sender: FDA-Public Use
  Company Number: DE-ROCHE-798152

PATIENT
  Sex: Female
  Weight: 50 kg

DRUGS (4)
  1. AVASTIN [Suspect]
     Indication: RENAL CELL CARCINOMA
     Route: 042
     Dates: start: 20100805, end: 20110118
  2. ASPIRIN [Concomitant]
     Dosage: INTAKE PRIOR NAPROXEN
  3. NAPROXEN [Concomitant]
     Dosage: START AFTER ASS WAS DISCONTINUED
  4. INTERFERON [Suspect]
     Indication: RENAL CELL CARCINOMA
     Route: 058
     Dates: start: 20100805, end: 20110126

REACTIONS (1)
  - HYPOAESTHESIA [None]
